FAERS Safety Report 10164183 (Version 1)
Quarter: 2014Q2

REPORT INFORMATION
  Report Type: Spontaneous
  Country: US (occurrence: US)
  Receive Date: 20140510
  Receipt Date: 20140510
  Transmission Date: 20141212
  Serious: No
  Sender: FDA-Public Use
  Company Number: US-BRISTOL-MYERS SQUIBB COMPANY-20009577

PATIENT
  Age: 75 Year
  Sex: Female
  Weight: 68.03 kg

DRUGS (3)
  1. BYDUREON [Suspect]
     Dates: start: 201301
  2. METFORMIN HCL [Suspect]
  3. GLYBURIDE [Suspect]

REACTIONS (2)
  - Blood glucose increased [Unknown]
  - Incorrect product storage [Unknown]
